FAERS Safety Report 9171734 (Version 2)
Quarter: 2013Q2

REPORT INFORMATION
  Report Type: Spontaneous
  Country: US (occurrence: None)
  Receive Date: 20130313
  Receipt Date: 20130408
  Transmission Date: 20140414
  Serious: Yes (Other)
  Sender: FDA-Public Use
  Company Number: 2013P1002958

PATIENT
  Age: 64 Year
  Sex: Male

DRUGS (1)
  1. INFUMORPH [Suspect]
     Indication: PAIN
     Dosage: 15  MG;  QD;?UNKNOWN  -  UNKNOWN

REACTIONS (2)
  - Inadequate analgesia [None]
  - Pump reservoir issue [None]
